FAERS Safety Report 5415667-9 (Version None)
Quarter: 2007Q3

REPORT INFORMATION
  Report Type: 
  Country: None (occurrence: None)
  Receive Date: 20070815
  Receipt Date: 20061211
  Transmission Date: 20080115
  Serious: No
  Sender: FDA-Public Use
  Company Number: US-BRISTOL-MYERS SQUIBB COMPANY-13608336

PATIENT
  Sex: Male
  Weight: 127 kg

DRUGS (2)
  1. TEQUIN [Suspect]
     Indication: BRONCHITIS
     Dates: start: 20060701
  2. TUSSIN CF COUGH [Concomitant]

REACTIONS (2)
  - ABDOMINAL DISCOMFORT [None]
  - FUNGAL INFECTION [None]
